FAERS Safety Report 9342667 (Version 1)
Quarter: 2013Q2

REPORT INFORMATION
  Report Type: Spontaneous
  Country: GB (occurrence: GB)
  Receive Date: 20130611
  Receipt Date: 20130611
  Transmission Date: 20140414
  Serious: Yes (Other)
  Sender: FDA-Public Use
  Company Number: GB-TEVA-410152ISR

PATIENT
  Age: 35 Year
  Sex: Male

DRUGS (2)
  1. LEVETIRACETAM [Suspect]
     Dosage: TOTAL DAILY DOSE: 1000
  2. CARBAMAZEPINE [Concomitant]
     Dosage: TOTAL DAILY DOSE: 1000

REACTIONS (2)
  - Head injury [Unknown]
  - Agnosia [Unknown]
